FAERS Safety Report 7956000-8 (Version None)
Quarter: 2011Q4

REPORT INFORMATION
  Report Type: 
  Country: None (occurrence: None)
  Receive Date: 20111205
  Receipt Date: 20111129
  Transmission Date: 20120403
  Serious: No
  Sender: FDA-Public Use
  Company Number: US-BIOGENIDEC-2011BI045511

PATIENT
  Sex: Female

DRUGS (7)
  1. CYMBALTA [Concomitant]
     Indication: PAIN
  2. ULTRAM [Concomitant]
     Indication: PAIN
  3. BACLOFEN [Concomitant]
     Indication: MUSCLE SPASMS
  4. AVONEX [Suspect]
     Indication: MULTIPLE SCLEROSIS
     Route: 030
     Dates: start: 20110602
  5. AMPYRA [Concomitant]
     Indication: MUSCULAR WEAKNESS
  6. TOPAMAX [Concomitant]
     Indication: PAIN
  7. BACLOFEN [Concomitant]
     Indication: PAIN

REACTIONS (8)
  - INFLUENZA LIKE ILLNESS [None]
  - MULTIPLE SCLEROSIS RELAPSE [None]
  - NAIL DISCOLOURATION [None]
  - HEADACHE [None]
  - ONYCHOCLASIS [None]
  - ALOPECIA [None]
  - SYNCOPE [None]
  - OSTEOPENIA [None]
